FAERS Safety Report 12538500 (Version 1)
Quarter: 2016Q3

REPORT INFORMATION
  Report Type: Spontaneous
  Country: JP (occurrence: JP)
  Receive Date: 20160707
  Receipt Date: 20160707
  Transmission Date: 20161109
  Serious: Yes (Death)
  Sender: FDA-Public Use
  Company Number: JP-ROCHE-1749235

PATIENT
  Age: 81 Year
  Sex: Female

DRUGS (6)
  1. PREDNISOLONE. [Suspect]
     Active Substance: PREDNISOLONE
     Route: 042
     Dates: start: 20160329, end: 20160404
  2. PREDNISOLONE. [Suspect]
     Active Substance: PREDNISOLONE
     Route: 048
     Dates: start: 20160405, end: 20160411
  3. RITUXAN [Suspect]
     Active Substance: RITUXIMAB
     Indication: MICROSCOPIC POLYANGIITIS
     Dosage: RECEIVED NEXT DOSE ON 11/APR/2016
     Route: 042
     Dates: start: 20160404
  4. PREDNISOLONE. [Suspect]
     Active Substance: PREDNISOLONE
     Indication: MICROSCOPIC POLYANGIITIS
     Route: 048
     Dates: start: 20160329
  5. SOLU-MEDROL [Concomitant]
     Active Substance: METHYLPREDNISOLONE SODIUM SUCCINATE
     Indication: MICROSCOPIC POLYANGIITIS
     Route: 065
     Dates: start: 20160326, end: 20160328
  6. PREDNISOLONE. [Suspect]
     Active Substance: PREDNISOLONE
     Route: 048
     Dates: start: 20160412, end: 20160425

REACTIONS (1)
  - Urinary tract infection [Fatal]

NARRATIVE: CASE EVENT DATE: 20160418
